FAERS Safety Report 9119330 (Version 1)
Quarter: 2013Q1

REPORT INFORMATION
  Report Type: Spontaneous
  Country: US (occurrence: None)
  Receive Date: 20130221
  Receipt Date: 20130221
  Transmission Date: 20140127
  Serious: Yes (Other)
  Sender: FDA-Public Use
  Company Number: None

PATIENT
  Age: 23 Year
  Sex: Female
  Weight: 52.2 kg

DRUGS (1)
  1. MULTIHANCE [Suspect]

REACTIONS (7)
  - Contrast media reaction [None]
  - Nausea [None]
  - Vomiting [None]
  - Cough [None]
  - Back pain [None]
  - Pain of skin [None]
  - Abdominal pain [None]
